FAERS Safety Report 20690738 (Version 2)
Quarter: 2022Q2

REPORT INFORMATION
  Report Type: Spontaneous
  Country: ES (occurrence: ES)
  Receive Date: 20220408
  Receipt Date: 20220426
  Transmission Date: 20220720
  Serious: Yes (Other)
  Sender: FDA-Public Use
  Company Number: ES-AMGEN-ESPSP2022047322

PATIENT
  Age: 65 Year
  Sex: Male

DRUGS (12)
  1. LENALIDOMIDE [Suspect]
     Active Substance: LENALIDOMIDE
     Indication: Plasma cell myeloma
     Dosage: 5 MILLIGRAM, QD
     Route: 065
  2. LENALIDOMIDE [Suspect]
     Active Substance: LENALIDOMIDE
     Dosage: 5 MILLIGRAM, QD
     Route: 065
  3. LENALIDOMIDE [Suspect]
     Active Substance: LENALIDOMIDE
     Dates: start: 20190318
  4. LENALIDOMIDE [Suspect]
     Active Substance: LENALIDOMIDE
     Dates: start: 20200526
  5. DEXAMETHASONE [Suspect]
     Active Substance: DEXAMETHASONE
     Indication: Plasma cell myeloma
     Dosage: UNK
     Route: 065
     Dates: start: 20190318
  6. KYPROLIS [Suspect]
     Active Substance: CARFILZOMIB
     Indication: Plasma cell myeloma
     Dosage: UNK
     Route: 065
     Dates: start: 20190318
  7. ACYCLOVIR [Concomitant]
     Active Substance: ACYCLOVIR
     Indication: Antiviral prophylaxis
     Dosage: 800 MILLIGRAM, QD
  8. HEPARIN SODIUM [Concomitant]
     Active Substance: HEPARIN SODIUM
     Dosage: 120 MILLIGRAM, QD
     Route: 065
  9. HEPARIN SODIUM [Concomitant]
     Active Substance: HEPARIN SODIUM
     Indication: Thrombosis
     Dosage: 40 MILLIGRAM, QD
     Route: 065
  10. HEPARIN SODIUM [Concomitant]
     Active Substance: HEPARIN SODIUM
  11. ENOXAPARIN [Concomitant]
     Active Substance: ENOXAPARIN
     Dosage: 40 MILLIGRAM, QD 21 DAYS EVERY 28 DAYS AFTER 9 CYCLES.
  12. ENOXAPARIN [Concomitant]
     Active Substance: ENOXAPARIN
     Indication: Product used for unknown indication

REACTIONS (8)
  - Nephrolithiasis [Unknown]
  - Thyroxine increased [Unknown]
  - Blood thyroid stimulating hormone decreased [Unknown]
  - Dyspnoea [Unknown]
  - Plasma cell myeloma recurrent [Unknown]
  - Deep vein thrombosis [Unknown]
  - Tri-iodothyronine increased [Unknown]
  - Asthenia [Unknown]

NARRATIVE: CASE EVENT DATE: 20190101
